FAERS Safety Report 9244627 (Version 2)
Quarter: 2013Q2

REPORT INFORMATION
  Report Type: Spontaneous
  Country: US (occurrence: US)
  Receive Date: 20130422
  Receipt Date: 20130508
  Transmission Date: 20140414
  Serious: No
  Sender: FDA-Public Use
  Company Number: US-TEVA-399073USA

PATIENT
  Age: 74 Year
  Sex: Female

DRUGS (5)
  1. QVAR [Suspect]
  2. ANTIHYPERTENSIVES [Concomitant]
     Indication: BLOOD PRESSURE
  3. VALIUM [Concomitant]
  4. REGULAR MEDICATIONS [Concomitant]
  5. HAPPY PILLS [Concomitant]

REACTIONS (4)
  - Chest pain [Recovered/Resolved]
  - Throat irritation [Unknown]
  - Feeling abnormal [Unknown]
  - Drug ineffective [Unknown]
